FAERS Safety Report 7582760-4 (Version None)
Quarter: 2011Q2

REPORT INFORMATION
  Report Type: 
  Country: None (occurrence: None)
  Receive Date: 20110630
  Receipt Date: 20110623
  Transmission Date: 20111010
  Serious: Yes (Death)
  Sender: FDA-Public Use
  Company Number: US-PFIZER INC-2011139772

PATIENT
  Age: 27 Year
  Sex: Female

DRUGS (2)
  1. ZITHROMAX [Suspect]
     Indication: SINUSITIS
  2. AUGMENTIN '125' [Suspect]
     Indication: SINUSITIS
     Dosage: 1 PILL A DAY

REACTIONS (2)
  - SEPTIC SHOCK [None]
  - INTESTINAL PERFORATION [None]
